FAERS Safety Report 20914439 (Version 1)
Quarter: 2022Q2

REPORT INFORMATION
  Report Type: Spontaneous
  Country: US (occurrence: US)
  Receive Date: 20220604
  Receipt Date: 20220604
  Transmission Date: 20220721
  Serious: No
  Sender: FDA-Public Use
  Company Number: US-SANOFI-01110656

PATIENT
  Age: 13 Year
  Sex: Male

DRUGS (1)
  1. LUMIZYME [Suspect]
     Active Substance: ALGLUCOSIDASE ALFA
     Indication: Glycogen storage disease type II
     Dosage: DRUG STRUCTURE DOSAGE : 1050 DRUG INTERVAL DOSAGE : DRUG TREATMENT DURATION:

REACTIONS (2)
  - Weight decreased [Unknown]
  - Product temperature excursion issue [Unknown]

NARRATIVE: CASE EVENT DATE: 20210701
